FAERS Safety Report 24450413 (Version 2)
Quarter: 2024Q4

REPORT INFORMATION
  Report Type: Spontaneous
  Country: US (occurrence: US)
  Receive Date: 20241017
  Receipt Date: 20241113
  Transmission Date: 20250115
  Serious: Yes (Other)
  Sender: BAYER HEALTHCARE LLC
  Company Number: US-BAYER-2024A146907

PATIENT
  Age: 65 Year
  Sex: Female
  Weight: 73.9 kg

DRUGS (38)
  1. ALEVE [Suspect]
     Active Substance: NAPROXEN SODIUM
     Indication: Product used for unknown indication
     Dosage: UNK
     Route: 065
  2. ALEVE [Suspect]
     Active Substance: NAPROXEN SODIUM
     Indication: Back pain
  3. IBUPROFEN [Suspect]
     Active Substance: IBUPROFEN
  4. REMODULIN [Suspect]
     Active Substance: TREPROSTINIL
     Indication: Pulmonary arterial hypertension
     Dosage: 0.041 ?G/KG (PHARMACY PREFILLED WITH 2ML PER CASSETTE; PUMP RATE OF 20MCL PER HOUR
     Route: 058
     Dates: start: 20230403
  5. REMODULIN [Suspect]
     Active Substance: TREPROSTINIL
     Indication: Pulmonary arterial hypertension
     Dosage: PHARMACY 3 PRE-FILLED WITH 2.2 ML PER CASSETTE, AT AN INFUSION RATE OF 22 MCL PER HOUR
     Route: 058
  6. REMODULIN [Suspect]
     Active Substance: TREPROSTINIL
     Indication: Pulmonary arterial hypertension
     Dosage: UNK
     Route: 058
     Dates: start: 20230304
  7. PROZAC [Concomitant]
     Active Substance: FLUOXETINE HYDROCHLORIDE
  8. FIORICET [Concomitant]
     Active Substance: ACETAMINOPHEN\BUTALBITAL\CAFFEINE
  9. PRED FORTE [Concomitant]
     Active Substance: PREDNISOLONE ACETATE
  10. POTASSIUM CHLORIDE [Concomitant]
     Active Substance: POTASSIUM CHLORIDE
  11. ACETAMINOPHEN\HYDROCODONE [Concomitant]
     Active Substance: ACETAMINOPHEN\HYDROCODONE
  12. DIFLUPREDNATE [Concomitant]
     Active Substance: DIFLUPREDNATE
  13. MEDICAL FOOD [Concomitant]
     Active Substance: MEDICAL FOOD
  14. LEVETIRACETAM [Concomitant]
     Active Substance: LEVETIRACETAM
  15. FLUTICASONE PROPIONATE [Concomitant]
     Active Substance: FLUTICASONE PROPIONATE
  16. VITAMINS [Concomitant]
     Active Substance: VITAMINS
  17. OXYGEN [Concomitant]
     Active Substance: OXYGEN
  18. MUPIROCIN [Concomitant]
     Active Substance: MUPIROCIN
  19. LIDOCAINE [Concomitant]
     Active Substance: LIDOCAINE
  20. REFRESH PLUS [Concomitant]
     Active Substance: CARBOXYMETHYLCELLULOSE SODIUM
  21. CHOLESTYRAMINE [Concomitant]
     Active Substance: CHOLESTYRAMINE
  22. NYSTATIN\TRIAMCINOLONE [Concomitant]
     Active Substance: NYSTATIN\TRIAMCINOLONE
  23. ZINC [Concomitant]
     Active Substance: ZINC
  24. OLOPATADINE HYDROCHLORIDE [Concomitant]
     Active Substance: OLOPATADINE HYDROCHLORIDE
  25. PHENOBARBITAL [Concomitant]
     Active Substance: PHENOBARBITAL
  26. GABAPENTIN [Concomitant]
     Active Substance: GABAPENTIN
  27. FUROSEMIDE [Concomitant]
     Active Substance: FUROSEMIDE
  28. ONDANSETRON [Concomitant]
     Active Substance: ONDANSETRON
  29. VITAMIN D3 [Concomitant]
     Active Substance: CHOLECALCIFEROL
  30. FEXOFENADINE HYDROCHLORIDE [Concomitant]
     Active Substance: FEXOFENADINE HYDROCHLORIDE
  31. PROCTOMED [Concomitant]
  32. LOPERAMIDE [Concomitant]
     Active Substance: LOPERAMIDE
  33. VITAMIN B COMPLEX WITH C [Concomitant]
     Active Substance: ASCORBIC ACID\CALCIUM PANTOTHENATE\CYANOCOBALAMIN\NIACINAMIDE\PYRIDOXINE HYDROCHLORIDE\RIBOFLAVIN\TH
  34. TRIAMCINOLONE ACETONIDE [Concomitant]
     Active Substance: TRIAMCINOLONE ACETONIDE
  35. REFRESH RELIEVA [Concomitant]
     Active Substance: CARBOXYMETHYLCELLULOSE SODIUM\GLYCERIN
  36. SOTATERCEPT [Concomitant]
     Active Substance: SOTATERCEPT
  37. DIPHENHYDRAMINE HYDROCHLORIDE [Concomitant]
     Active Substance: DIPHENHYDRAMINE HYDROCHLORIDE
  38. OXYCODONE AND ACETAMINOPHEN [Concomitant]
     Active Substance: ACETAMINOPHEN\OXYCODONE HYDROCHLORIDE

REACTIONS (6)
  - Epistaxis [Recovered/Resolved]
  - Dyspnoea [None]
  - Drug ineffective [None]
  - Weight increased [None]
  - Laboratory test abnormal [None]
  - Diarrhoea [None]

NARRATIVE: CASE EVENT DATE: 20241003
